FAERS Safety Report 24938030 (Version 1)
Quarter: 2025Q1

REPORT INFORMATION
  Report Type: Spontaneous
  Country: BE (occurrence: BE)
  Receive Date: 20250206
  Receipt Date: 20250206
  Transmission Date: 20250408
  Serious: Yes (Life-Threatening, Other)
  Sender: ELI LILLY AND COMPANY
  Company Number: BE-ELI_LILLY_AND_COMPANY-BE202502000897

PATIENT
  Age: 35 Year
  Sex: Male

DRUGS (1)
  1. IXEKIZUMAB [Suspect]
     Active Substance: IXEKIZUMAB
     Indication: Psoriasis
     Dosage: UNK, MONTHLY (1/M)
     Route: 065

REACTIONS (6)
  - Otitis media [Recovered/Resolved]
  - Facial paresis [Recovered/Resolved]
  - Otorrhoea [Recovered/Resolved]
  - Erysipelas [Unknown]
  - Pharyngeal abscess [Recovered/Resolved]
  - Upper respiratory tract infection [Recovered/Resolved]
